FAERS Safety Report 10749208 (Version 2)
Quarter: 2015Q2

REPORT INFORMATION
  Report Type: Report from Study
  Country: US (occurrence: None)
  Receive Date: 20150120
  Receipt Date: 20150420
  Transmission Date: 20150821
  Serious: No
  Sender: FDA-Public Use
  Company Number: AEGR000759

PATIENT
  Age: 60 Year
  Sex: Female
  Weight: 91.6 kg

DRUGS (13)
  1. ADVAIR DISKUS [Concomitant]
     Active Substance: FLUTICASONE PROPIONATE\SALMETEROL XINAFOATE
  2. LEXAPRO [Concomitant]
     Active Substance: ESCITALOPRAM OXALATE
  3. VITAMIN D3 [Concomitant]
     Active Substance: CHOLECALCIFEROL
  4. ZETIA [Concomitant]
     Active Substance: EZETIMIBE
  5. JUXTAPID [Suspect]
     Active Substance: LOMITAPIDE MESYLATE
     Indication: TYPE IIA HYPERLIPIDAEMIA
     Route: 048
     Dates: start: 20140918
  6. PROAIR HFA [Concomitant]
     Active Substance: ALBUTEROL SULFATE
  7. ATORVASTATIN [Concomitant]
     Active Substance: ATORVASTATIN
  8. COREG [Concomitant]
     Active Substance: CARVEDILOL
  9. ALPRAZOLAM. [Concomitant]
     Active Substance: ALPRAZOLAM
  10. LASIX [Concomitant]
     Active Substance: FUROSEMIDE
  11. ASPRIIN (ACETYLSALICYLIC ACID) [Concomitant]
  12. TRAMADOL (TRAMADOL HYDROCHLORIDE) [Concomitant]
     Active Substance: TRAMADOL HYDROCHLORIDE
  13. LISINOPRIL. [Concomitant]
     Active Substance: LISINOPRIL

REACTIONS (15)
  - Malaise [None]
  - Memory impairment [None]
  - Drug hypersensitivity [None]
  - Muscle spasms [None]
  - Nausea [None]
  - Abdominal discomfort [None]
  - Inappropriate schedule of drug administration [None]
  - Therapy cessation [None]
  - Balance disorder [None]
  - Gastrointestinal disorder [None]
  - Vomiting [None]
  - Dizziness [None]
  - Vitamin B12 deficiency [None]
  - Diarrhoea [None]
  - Fatigue [None]

NARRATIVE: CASE EVENT DATE: 20041113
